FAERS Safety Report 15259693 (Version 1)
Quarter: 2018Q3

REPORT INFORMATION
  Report Type: Spontaneous
  Country: US (occurrence: US)
  Receive Date: 20180719
  Receipt Date: 20180719
  Transmission Date: 20181010
  Serious: No
  Sender: FDA-Public Use
  Company Number: None

PATIENT
  Age: 44 Year
  Sex: Female

DRUGS (1)
  1. SAMSCA [Suspect]
     Active Substance: TOLVAPTAN
     Route: 048
     Dates: start: 20180621, end: 20180717

REACTIONS (5)
  - Sleep disorder [None]
  - Pain [None]
  - Sciatica [None]
  - Eating disorder [None]
  - Blood sodium abnormal [None]

NARRATIVE: CASE EVENT DATE: 20180719
